FAERS Safety Report 13295456 (Version 1)
Quarter: 2017Q1

REPORT INFORMATION
  Report Type: Spontaneous
  Country: US (occurrence: US)
  Receive Date: 20170303
  Receipt Date: 20170303
  Transmission Date: 20170428
  Serious: No
  Sender: FDA-Public Use
  Company Number: US-JNJFOC-20170110716

PATIENT
  Age: 58 Year
  Sex: Male
  Weight: 105.69 kg

DRUGS (1)
  1. XARELTO [Suspect]
     Active Substance: RIVAROXABAN
     Indication: THROMBOSIS
     Route: 048
     Dates: start: 20170105

REACTIONS (3)
  - Pain in extremity [Unknown]
  - Burning sensation [Unknown]
  - Weight decreased [Unknown]

NARRATIVE: CASE EVENT DATE: 20170105
